FAERS Safety Report 9111076 (Version 1)
Quarter: 2013Q1

REPORT INFORMATION
  Report Type: Spontaneous
  Country: US (occurrence: US)
  Receive Date: 20130219
  Receipt Date: 20130219
  Transmission Date: 20140127
  Serious: No
  Sender: FDA-Public Use
  Company Number: US-BRISTOL-MYERS SQUIBB COMPANY-16865875

PATIENT
  Age: 34 Year
  Sex: Male
  Weight: 80.72 kg

DRUGS (1)
  1. ABATACEPT SUBQ INJECTION 125MG/ML [Suspect]
     Indication: RHEUMATOID ARTHRITIS
     Dosage: STARTED 6 WEEKS AGO AND HAD AN IV LOADING DOSE STRT DATE:9JUL12 ?LAST INF:12AUG2012
     Route: 058
     Dates: start: 20120710

REACTIONS (2)
  - Drug ineffective [Unknown]
  - Chest pain [Unknown]
